FAERS Safety Report 7993969-X (Version None)
Quarter: 2011Q4

REPORT INFORMATION
  Report Type: 
  Country: None (occurrence: None)
  Receive Date: 20111220
  Receipt Date: 20111208
  Transmission Date: 20120403
  Serious: Yes (Other)
  Sender: FDA-Public Use
  Company Number: US-BAYER-2011-118366

PATIENT
  Sex: Female

DRUGS (2)
  1. BEYAZ [Suspect]
     Indication: ACNE
  2. BEYAZ [Suspect]
     Indication: POLYCYSTIC OVARIES
     Dosage: UNK
     Dates: start: 20111128

REACTIONS (2)
  - HYPOACUSIS [None]
  - EAR DISCOMFORT [None]
